FAERS Safety Report 6533630-1 (Version None)
Quarter: 2010Q1

REPORT INFORMATION
  Report Type: 
  Country: None (occurrence: None)
  Receive Date: 20100108
  Receipt Date: 20100108
  Transmission Date: 20100710
  Serious: No
  Sender: FDA-Public Use
  Company Number: None

PATIENT
  Age: 67 Year
  Sex: Female
  Weight: 70.3075 kg

DRUGS (4)
  1. MICARDIS [Suspect]
     Indication: HYPERTENSION
     Dosage: 80MG ONE A DAY PO
     Route: 048
     Dates: start: 20070816, end: 20090816
  2. RAMIPRIL [Suspect]
     Indication: HYPERTENSION
     Dosage: 10MG TWICE A DAY PO
     Route: 048
     Dates: start: 20070816, end: 20090816
  3. MICARDIS [Concomitant]
  4. ALTACE [Concomitant]

REACTIONS (5)
  - ALOPECIA [None]
  - DEPRESSION [None]
  - EYE SWELLING [None]
  - RASH [None]
  - SWELLING FACE [None]
